FAERS Safety Report 14165769 (Version 5)
Quarter: 2018Q1

REPORT INFORMATION
  Report Type: Spontaneous
  Country: ES (occurrence: ES)
  Receive Date: 20171107
  Receipt Date: 20180303
  Transmission Date: 20180508
  Serious: Yes (Life-Threatening, Hospitalization, Congenital Anomaly, Other)
  Sender: FDA-Public Use
  Company Number: ES-AUROBINDO-AUR-APL-2017-43363

PATIENT
  Age: 32 Week
  Sex: Male

DRUGS (2)
  1. OLMESARTAN AUROBINDO FILM COATED TABLETS [Suspect]
     Active Substance: OLMESARTAN
     Dosage: UNK
     Route: 064
  2. AMLODIPINE [Concomitant]
     Active Substance: AMLODIPINE BESYLATE
     Indication: ESSENTIAL HYPERTENSION

REACTIONS (21)
  - Areflexia [None]
  - Neonatal anuria [None]
  - Oligohydramnios [Not Recovered/Not Resolved]
  - Renal failure [Recovered/Resolved]
  - Hypotonia neonatal [Unknown]
  - Hypotension [Unknown]
  - Maternal drugs affecting foetus [None]
  - Caesarean section [None]
  - Premature baby [None]
  - Proteinuria [None]
  - Potter^s syndrome [Unknown]
  - Anuria [Recovered/Resolved]
  - Anaemia [None]
  - Foetal exposure during pregnancy [Recovered/Resolved]
  - Off label use [Not Recovered/Not Resolved]
  - Kidney small [None]
  - Hypertension [None]
  - Pulmonary hypoplasia [Unknown]
  - Pneumothorax [Unknown]
  - Peritoneal dialysis [None]
  - Renal failure neonatal [None]
